FAERS Safety Report 4668394-X (Version None)
Quarter: 2005Q2

REPORT INFORMATION
  Report Type: 
  Country: None (occurrence: None)
  Receive Date: 20050518
  Receipt Date: 20050509
  Transmission Date: 20051028
  Serious: Yes (Hospitalization)
  Sender: FDA-Public Use
  Company Number: B0345402A

PATIENT
  Age: 22 Year
  Sex: Male

DRUGS (9)
  1. ZIAGEN [Suspect]
     Indication: HIV INFECTION
     Dosage: 600 MG / PER DAY / ORAL
     Route: 048
     Dates: start: 20000518, end: 20020424
  2. STAVUDINE CAPSULE (STAVUDINE) [Suspect]
     Indication: HIV INFECTION
     Dosage: 60 MG D
     Dates: start: 20000117, end: 20020424
  3. NELFINAVIR MESYLATE TABLET (NELFINAVIR MESYLATE) [Suspect]
     Indication: HIV INFECTION
     Dosage: ORAL
     Route: 048
     Dates: start: 20000117, end: 20020424
  4. EFAVIRENZ CAPSULE (EFAVIRENZ) [Suspect]
     Indication: HIV INFECTION
     Dosage: 600 MG D
     Dates: start: 20000518, end: 20020424
  5. PREDNISOLONE [Concomitant]
  6. FAMOTIDINE [Concomitant]
  7. FRUSEMIDE [Concomitant]
  8. ALBUMIN (HUMAN) [Concomitant]
  9. FACTOR IX COMPLEX [Concomitant]

REACTIONS (4)
  - BLOOD UREA INCREASED [None]
  - BLOOD URINE PRESENT [None]
  - NEPHROTIC SYNDROME [None]
  - RENAL IMPAIRMENT [None]
